FAERS Safety Report 7161365-3 (Version None)
Quarter: 2010Q4

REPORT INFORMATION
  Report Type: 
  Country: None (occurrence: None)
  Receive Date: 20101215
  Receipt Date: 20101201
  Transmission Date: 20110411
  Serious: Yes (Hospitalization)
  Sender: FDA-Public Use
  Company Number: HR-RANBAXY-2010RR-40063

PATIENT
  Age: 48 Year
  Sex: Female

DRUGS (5)
  1. IBUPROFEN [Suspect]
     Dosage: 400 MG, BID
     Route: 048
  2. RANITIDINE [Suspect]
     Dosage: 300 MG, QD
     Route: 048
  3. CIPROFLOXACIN [Concomitant]
  4. AMOXICILLIN AND CLAVULANATE POTASSIUM [Concomitant]
  5. PARACETAMOL [Concomitant]

REACTIONS (5)
  - DEAFNESS BILATERAL [None]
  - MENINGITIS ASEPTIC [None]
  - OTOTOXICITY [None]
  - TINNITUS [None]
  - VESTIBULAR DISORDER [None]
